FAERS Safety Report 7731022-0 (Version None)
Quarter: 2011Q3

REPORT INFORMATION
  Report Type: 
  Country: None (occurrence: None)
  Receive Date: 20110906
  Receipt Date: 20110901
  Transmission Date: 20111222
  Serious: Yes (Other)
  Sender: FDA-Public Use
  Company Number: US-PFIZER INC-2011205216

PATIENT
  Sex: Female
  Weight: 45.351 kg

DRUGS (3)
  1. ALPRAZOLAM [Suspect]
     Indication: ANXIETY
     Dosage: 0.5 MG, UNK
     Route: 048
     Dates: start: 20101001, end: 20110801
  2. RITALIN [Interacting]
     Indication: ATTENTION DEFICIT/HYPERACTIVITY DISORDER
     Dosage: UNK
  3. LITHIUM [Concomitant]
     Indication: BIPOLAR I DISORDER
     Dosage: UNK

REACTIONS (10)
  - INSOMNIA [None]
  - HALLUCINATION, AUDITORY [None]
  - ANXIETY [None]
  - PSYCHOMOTOR HYPERACTIVITY [None]
  - WITHDRAWAL SYNDROME [None]
  - PARAESTHESIA [None]
  - DRUG INTERACTION [None]
  - HYPERTENSION [None]
  - AGITATION [None]
  - DEPRESSION [None]
